FAERS Safety Report 4796202-5 (Version None)
Quarter: 2005Q4

REPORT INFORMATION
  Report Type: 
  Country: None (occurrence: None)
  Receive Date: 20051006
  Receipt Date: 20051006
  Transmission Date: 20060501
  Serious: Yes (Disabling)
  Sender: FDA-Public Use
  Company Number: None

PATIENT
  Age: 37 Year
  Sex: Male
  Weight: 65.7716 kg

DRUGS (2)
  1. EFFEXOR XR [Suspect]
     Indication: DEPRESSION
     Dosage: ONE PER DAY
     Dates: start: 20050504, end: 20051005
  2. EFFEXOR XR [Suspect]
     Indication: PAIN
     Dosage: ONE PER DAY
     Dates: start: 20050504, end: 20051005

REACTIONS (5)
  - ANOREXIA [None]
  - DRUG WITHDRAWAL SYNDROME [None]
  - FEELING ABNORMAL [None]
  - IMPAIRED WORK ABILITY [None]
  - MALAISE [None]
